FAERS Safety Report 22329445 (Version 6)
Quarter: 2023Q4

REPORT INFORMATION
  Report Type: Spontaneous
  Country: CA (occurrence: CA)
  Receive Date: 20230517
  Receipt Date: 20231212
  Transmission Date: 20240110
  Serious: Yes (Other)
  Sender: FDA-Public Use
  Company Number: CA-CELLTRION INC.-2018CA018449

PATIENT

DRUGS (56)
  1. INFLECTRA [Suspect]
     Active Substance: INFLIXIMAB-DYYB
     Indication: Crohn^s disease
     Dosage: 5 MG/KG (419.5 MG), 0, 2, 6, THEN EVERY 8 WEEKS
     Route: 042
     Dates: start: 20180112, end: 20180810
  2. INFLECTRA [Suspect]
     Active Substance: INFLIXIMAB-DYYB
     Dosage: 500 MG, AT 0, 2, 6, THEN EVERY 8 WEEKS
     Route: 042
     Dates: start: 20180112, end: 20180810
  3. INFLECTRA [Suspect]
     Active Substance: INFLIXIMAB-DYYB
     Dosage: 5 MG/KG (419.5 MG), 0, 2, 6, THEN EVERY 8 WEEKS
     Route: 042
     Dates: start: 20180112, end: 20180810
  4. INFLECTRA [Suspect]
     Active Substance: INFLIXIMAB-DYYB
     Dosage: 5 MG/KG (419.5 MG), 0, 2, 6, THEN EVERY 8 WEEKS
     Route: 042
     Dates: start: 20180112, end: 20180810
  5. INFLECTRA [Suspect]
     Active Substance: INFLIXIMAB-DYYB
     Dosage: 5 MG/KG (419.5 MG), 0, 2, 6, THEN EVERY 8 WEEKS
     Route: 042
     Dates: start: 20180126
  6. INFLECTRA [Suspect]
     Active Substance: INFLIXIMAB-DYYB
     Dosage: 419.5 MG (5 MG/KG), 0, 2, 6, THEN EVERY 8 WEEKS
     Route: 042
     Dates: start: 20180223
  7. INFLECTRA [Suspect]
     Active Substance: INFLIXIMAB-DYYB
     Dosage: 500 MG, AT 0, 2, 6, THEN EVERY 8 WEEKS
     Route: 042
     Dates: start: 20180420
  8. INFLECTRA [Suspect]
     Active Substance: INFLIXIMAB-DYYB
     Dosage: UNK
     Route: 042
     Dates: start: 20180615
  9. INFLECTRA [Suspect]
     Active Substance: INFLIXIMAB-DYYB
     Dosage: 500 MG, 0, 2, 6, THEN EVERY 8 WEEKS
     Route: 042
     Dates: start: 20180810
  10. INFLECTRA [Suspect]
     Active Substance: INFLIXIMAB-DYYB
     Dosage: 500 MG, 0, 2, 6, THEN EVERY 8 WEEKS
     Route: 042
     Dates: start: 20180810, end: 20180810
  11. INFLECTRA [Suspect]
     Active Substance: INFLIXIMAB-DYYB
     Dosage: 600 MG, Q8 WEEKS
     Route: 042
     Dates: start: 20181005, end: 20191105
  12. INFLECTRA [Suspect]
     Active Substance: INFLIXIMAB-DYYB
     Dosage: 600 MG, Q8 WEEKS
     Route: 042
     Dates: start: 20181130
  13. INFLECTRA [Suspect]
     Active Substance: INFLIXIMAB-DYYB
     Dosage: 600 MG, Q8 WEEKS
     Route: 042
     Dates: start: 20190125
  14. INFLECTRA [Suspect]
     Active Substance: INFLIXIMAB-DYYB
     Dosage: 600 MG, Q8 WEEKS
     Route: 042
     Dates: start: 20190319
  15. INFLECTRA [Suspect]
     Active Substance: INFLIXIMAB-DYYB
     Dosage: 600 MG, Q8 WEEKS
     Route: 042
     Dates: start: 20190515
  16. INFLECTRA [Suspect]
     Active Substance: INFLIXIMAB-DYYB
     Dosage: 600 MG, Q6 WEEKS
     Route: 042
     Dates: start: 20190625
  17. INFLECTRA [Suspect]
     Active Substance: INFLIXIMAB-DYYB
     Dosage: 600 MG, Q6 WEEKS
     Route: 042
     Dates: start: 20190710
  18. INFLECTRA [Suspect]
     Active Substance: INFLIXIMAB-DYYB
     Dosage: 600 MG, Q8 WEEKS
     Route: 042
     Dates: start: 20190904
  19. INFLECTRA [Suspect]
     Active Substance: INFLIXIMAB-DYYB
     Dosage: 600 MG, Q8 WEEKS
     Route: 042
     Dates: start: 20191105, end: 20191105
  20. INFLECTRA [Suspect]
     Active Substance: INFLIXIMAB-DYYB
     Dosage: 700 MG, Q6 WEEKS
     Route: 042
     Dates: start: 20191231, end: 20201105
  21. INFLECTRA [Suspect]
     Active Substance: INFLIXIMAB-DYYB
     Dosage: 700 MG, Q6 WEEKS
     Route: 042
     Dates: start: 20200225
  22. INFLECTRA [Suspect]
     Active Substance: INFLIXIMAB-DYYB
     Dosage: 700 MG, Q6 WEEKS
     Route: 042
     Dates: start: 20200407
  23. INFLECTRA [Suspect]
     Active Substance: INFLIXIMAB-DYYB
     Dosage: 700 MG, Q6 WEEKS
     Route: 042
     Dates: start: 20200520
  24. INFLECTRA [Suspect]
     Active Substance: INFLIXIMAB-DYYB
     Dosage: 700 MG, Q6 WEEKS
     Route: 042
     Dates: start: 20200703
  25. INFLECTRA [Suspect]
     Active Substance: INFLIXIMAB-DYYB
     Dosage: 700 MG, Q6 WEEKS
     Route: 042
     Dates: start: 20200813
  26. INFLECTRA [Suspect]
     Active Substance: INFLIXIMAB-DYYB
     Dosage: 700 MG, Q6 WEEKS
     Route: 042
     Dates: start: 20200924
  27. INFLECTRA [Suspect]
     Active Substance: INFLIXIMAB-DYYB
     Dosage: 700 MG, Q6 WEEKS
     Route: 042
     Dates: start: 20201105
  28. INFLECTRA [Suspect]
     Active Substance: INFLIXIMAB-DYYB
     Dosage: 700 MG, Q8 WEEKS
     Route: 042
     Dates: start: 20201105
  29. INFLECTRA [Suspect]
     Active Substance: INFLIXIMAB-DYYB
     Dosage: 700 MG, Q8 WEEKS
     Route: 042
     Dates: start: 20201214, end: 20201214
  30. INFLECTRA [Suspect]
     Active Substance: INFLIXIMAB-DYYB
     Dosage: 700 MG, Q6 WEEKS
     Route: 042
     Dates: start: 20210125
  31. INFLECTRA [Suspect]
     Active Substance: INFLIXIMAB-DYYB
     Dosage: 700 MG, Q6 WEEKS
     Route: 042
     Dates: start: 20210309
  32. INFLECTRA [Suspect]
     Active Substance: INFLIXIMAB-DYYB
     Dosage: 700 MG, Q6 WEEKS
     Route: 042
     Dates: start: 20210713
  33. INFLECTRA [Suspect]
     Active Substance: INFLIXIMAB-DYYB
     Dosage: 700 MG, Q6 WEEKS
     Route: 042
     Dates: start: 20210902
  34. INFLECTRA [Suspect]
     Active Substance: INFLIXIMAB-DYYB
     Dosage: 700 MG, Q6 WEEKS
     Route: 042
     Dates: start: 20211014
  35. INFLECTRA [Suspect]
     Active Substance: INFLIXIMAB-DYYB
     Dosage: 700 MG, Q6 WEEKS
     Route: 042
     Dates: start: 20220106
  36. INFLECTRA [Suspect]
     Active Substance: INFLIXIMAB-DYYB
     Dosage: 700 MG, Q6 WEEKS
     Route: 042
     Dates: start: 20220312
  37. INFLECTRA [Suspect]
     Active Substance: INFLIXIMAB-DYYB
     Dosage: 700 MG, Q6 WEEKS
     Route: 042
     Dates: start: 20220423
  38. INFLECTRA [Suspect]
     Active Substance: INFLIXIMAB-DYYB
     Dosage: 700 MG, Q6 WEEKS
     Route: 042
     Dates: start: 20220604
  39. INFLECTRA [Suspect]
     Active Substance: INFLIXIMAB-DYYB
     Dosage: 700 MG, Q6 WEEKS
     Route: 042
     Dates: start: 20220723
  40. INFLECTRA [Suspect]
     Active Substance: INFLIXIMAB-DYYB
     Dosage: 700 MG, Q6 WEEKS
     Route: 042
     Dates: start: 20220903
  41. INFLECTRA [Suspect]
     Active Substance: INFLIXIMAB-DYYB
     Dosage: 700 MG, Q6 WEEKS
     Route: 042
     Dates: start: 20221015
  42. INFLECTRA [Suspect]
     Active Substance: INFLIXIMAB-DYYB
     Dosage: 700 MG, Q6 WEEKS
     Route: 042
     Dates: start: 20230217
  43. INFLECTRA [Suspect]
     Active Substance: INFLIXIMAB-DYYB
     Dosage: 700 MG, EVERY 5 WEEKS
     Route: 042
     Dates: start: 20230308
  44. INFLECTRA [Suspect]
     Active Substance: INFLIXIMAB-DYYB
     Dosage: 700 MG, Q6 WEEKS
     Route: 042
     Dates: start: 20230331
  45. INFLECTRA [Suspect]
     Active Substance: INFLIXIMAB-DYYB
     Dosage: 700 MG, EVERY 5 WEEKS
     Route: 042
     Dates: start: 20230508
  46. INFLECTRA [Suspect]
     Active Substance: INFLIXIMAB-DYYB
     Dosage: 700 MG, EVERY 5 WEEKS
     Route: 042
     Dates: start: 20230610
  47. INFLECTRA [Suspect]
     Active Substance: INFLIXIMAB-DYYB
     Dosage: 700 MG, EVERY 5 WEEKS
     Route: 042
     Dates: start: 20230717
  48. INFLECTRA [Suspect]
     Active Substance: INFLIXIMAB-DYYB
     Dosage: 700 MG, EVERY 5 WEEKS
     Route: 042
     Dates: start: 20230817
  49. INFLECTRA [Suspect]
     Active Substance: INFLIXIMAB-DYYB
     Dosage: 700 MG, EVERY 5 WEEKS
     Route: 042
     Dates: start: 20230923
  50. INFLECTRA [Suspect]
     Active Substance: INFLIXIMAB-DYYB
     Dosage: 700 MG, EVERY 5 WEEKS
     Route: 042
     Dates: start: 20231028
  51. CIPRALEX [Concomitant]
     Active Substance: ESCITALOPRAM OXALATE
     Dosage: 20 MG
     Route: 065
     Dates: start: 201706
  52. CIPROLEX TZ [Concomitant]
     Dosage: 20 MG
     Route: 065
     Dates: start: 201706
  53. FOLIC ACID [Concomitant]
     Active Substance: FOLIC ACID
     Dosage: 5 MG, 1X/DAY
  54. IRON [Concomitant]
     Active Substance: IRON
     Dosage: 300 MG, 1X/DAY
     Route: 065
  55. PANTOPRAZOLE SODIUM [Concomitant]
     Active Substance: PANTOPRAZOLE SODIUM
     Dosage: 40 MG, 1X/DAY
     Route: 048
  56. CETIRIZINE HYDROCHLORIDE [Concomitant]
     Active Substance: CETIRIZINE HYDROCHLORIDE
     Dosage: 1 DF,DOSAGE INFO- AS NEEDED (PRN)
     Route: 065

REACTIONS (14)
  - Weight increased [Not Recovered/Not Resolved]
  - Therapeutic response shortened [Unknown]
  - Condition aggravated [Recovered/Resolved]
  - Malaise [Unknown]
  - Arthralgia [Recovered/Resolved]
  - Condition aggravated [Recovered/Resolved]
  - Aphthous ulcer [Recovered/Resolved]
  - Stomatitis [Recovering/Resolving]
  - Mouth ulceration [Unknown]
  - Off label use [Unknown]
  - Off label use [Unknown]
  - Intentional product use issue [Unknown]
  - Incorrect dose administered [Unknown]
  - Inappropriate schedule of product administration [Unknown]

NARRATIVE: CASE EVENT DATE: 20180223
